FAERS Safety Report 11531710 (Version 1)
Quarter: 2015Q3

REPORT INFORMATION
  Report Type: Spontaneous
  Country: US (occurrence: US)
  Receive Date: 20150921
  Receipt Date: 20150921
  Transmission Date: 20151125
  Serious: No
  Sender: FDA-Public Use
  Company Number: US-TAKEDA-2015TUS012678

PATIENT
  Age: 69 Year
  Sex: Male
  Weight: 104.31 kg

DRUGS (2)
  1. ZITHROMAX [Suspect]
     Active Substance: AZITHROMYCIN DIHYDRATE
     Indication: GASTRITIS
     Dosage: UNK
     Route: 048
     Dates: start: 20150903, end: 201509
  2. DEXILANT [Suspect]
     Active Substance: DEXLANSOPRAZOLE
     Indication: GASTRITIS
     Dosage: 60 MG, QD
     Route: 048
     Dates: start: 20150903, end: 20150909

REACTIONS (3)
  - Pruritus [Not Recovered/Not Resolved]
  - Off label use [Recovered/Resolved]
  - Rash [Not Recovered/Not Resolved]

NARRATIVE: CASE EVENT DATE: 201509
